FAERS Safety Report 7563314-2 (Version None)
Quarter: 2011Q2

REPORT INFORMATION
  Report Type: 
  Country: None (occurrence: None)
  Receive Date: 20110622
  Receipt Date: 20110603
  Transmission Date: 20111010
  Serious: Yes (Hospitalization)
  Sender: FDA-Public Use
  Company Number: A0870952A

PATIENT
  Sex: Male
  Weight: 92.7 kg

DRUGS (5)
  1. ZOCOR [Concomitant]
  2. GLUCOPHAGE [Concomitant]
  3. AMARYL [Concomitant]
  4. AVANDIA [Suspect]
     Dosage: 8MG PER DAY
     Route: 048
     Dates: start: 19990601, end: 20030301
  5. ALTACE [Concomitant]

REACTIONS (3)
  - DISABILITY [None]
  - CARDIOMYOPATHY [None]
  - CARDIAC FAILURE CONGESTIVE [None]
